FAERS Safety Report 6731730-4 (Version None)
Quarter: 2010Q2

REPORT INFORMATION
  Report Type: 
  Country: None (occurrence: None)
  Receive Date: 20100514
  Receipt Date: 20100506
  Transmission Date: 20101027
  Serious: No
  Sender: FDA-Public Use
  Company Number: 010240

PATIENT
  Sex: Male
  Weight: 72.1 kg

DRUGS (7)
  1. KEPPRA [Suspect]
     Indication: CONVULSION
     Dosage: 1000 MG QD, QAM ORAL; 500 MG QD, ORAL; 250 MG QD, 250 MG AT HS ORAL, (500/250)
     Route: 048
     Dates: start: 20100112, end: 20100301
  2. KEPPRA [Suspect]
     Indication: CONVULSION
     Dosage: 1000 MG QD, QAM ORAL; 500 MG QD, ORAL; 250 MG QD, 250 MG AT HS ORAL, (500/250)
     Route: 048
     Dates: start: 20100301, end: 20100401
  3. KEPPRA [Suspect]
     Indication: CONVULSION
     Dosage: 1000 MG QD, QAM ORAL; 500 MG QD, ORAL; 250 MG QD, 250 MG AT HS ORAL, (500/250)
     Route: 048
     Dates: start: 20100401
  4. KEPPRA [Suspect]
     Indication: CONVULSION
     Dosage: ORAL
     Route: 048
     Dates: start: 20050101
  5. TOPROL-XL [Concomitant]
  6. EASPRIN [Concomitant]
  7. MIDODRINE HYDROCHLORIDE [Concomitant]

REACTIONS (3)
  - DIZZINESS [None]
  - INSOMNIA [None]
  - OEDEMA PERIPHERAL [None]
